FAERS Safety Report 19610575 (Version 1)
Quarter: 2021Q3

REPORT INFORMATION
  Report Type: Spontaneous
  Country: US (occurrence: US)
  Receive Date: 20210726
  Receipt Date: 20210726
  Transmission Date: 20211014
  Serious: Yes (Hospitalization, Other)
  Sender: FDA-Public Use
  Company Number: US-GLAXOSMITHKLINE-US2021GSK154293

PATIENT
  Sex: Male

DRUGS (10)
  1. CISATRACURIUM. [Suspect]
     Active Substance: CISATRACURIUM
     Indication: MECHANICAL VENTILATION
     Dosage: UNK
     Route: 064
  2. PROPOFOL. [Suspect]
     Active Substance: PROPOFOL
     Indication: MECHANICAL VENTILATION
     Dosage: UNK
     Route: 064
  3. VECURONIUM [Suspect]
     Active Substance: VECURONIUM BROMIDE
     Indication: COVID-19
     Dosage: UNK
     Route: 064
  4. REMDESIVIR. [Suspect]
     Active Substance: REMDESIVIR
     Indication: COVID-19
     Dosage: UNK
     Route: 064
  5. FENTANYL. [Suspect]
     Active Substance: FENTANYL
     Indication: MECHANICAL VENTILATION
     Dosage: UNK
     Route: 064
  6. ALBUTEROL. [Suspect]
     Active Substance: ALBUTEROL
     Indication: ASTHMA
     Dosage: UNK
     Route: 064
  7. OXYGEN. [Suspect]
     Active Substance: OXYGEN
     Indication: COVID-19
     Dosage: 4 L TO 12 L VIA NASAL CANNULA
     Route: 064
  8. CONVALESCENT PLASMA COVID 19 [Suspect]
     Active Substance: COVID-19 CONVALESCENT PLASMA
     Indication: COVID-19
     Dosage: UNK
     Route: 064
  9. METHYLPREDNISOLONE. [Suspect]
     Active Substance: METHYLPREDNISOLONE
     Indication: COVID-19
     Dosage: UNK
     Route: 064
  10. OXYTOCIN. [Suspect]
     Active Substance: OXYTOCIN
     Indication: COVID-19
     Dosage: UNK
     Route: 064

REACTIONS (9)
  - Nonreassuring foetal heart rate pattern [Recovered/Resolved]
  - Amniotic fluid index decreased [Unknown]
  - Baseline foetal heart rate variability disorder [Recovered/Resolved]
  - Foetal heart rate acceleration abnormality [Recovered/Resolved]
  - Live birth [Unknown]
  - Heart rate decreased [Recovered/Resolved]
  - Neonatal hypoxia [Recovered/Resolved]
  - Foetal exposure during pregnancy [Unknown]
  - Neonatal respiratory depression [Recovered/Resolved]
